FAERS Safety Report 15884453 (Version 2)
Quarter: 2019Q1

REPORT INFORMATION
  Report Type: Spontaneous
  Country: JP (occurrence: JP)
  Receive Date: 20190129
  Receipt Date: 20190213
  Transmission Date: 20190417
  Serious: No
  Sender: FDA-Public Use
  Company Number: JP-PFIZER INC-2018506274

PATIENT
  Age: 8 Decade
  Sex: Male

DRUGS (1)
  1. LORBRENA [Suspect]
     Active Substance: LORLATINIB
     Dosage: 75 MG, DAILY
     Dates: start: 20181204, end: 20190206

REACTIONS (4)
  - Cognitive disorder [Recovered/Resolved]
  - Flatulence [Not Recovered/Not Resolved]
  - Malignant neoplasm progression [None]
  - Jaundice [Unknown]
